FAERS Safety Report 20643493 (Version 3)
Quarter: 2022Q2

REPORT INFORMATION
  Report Type: Report from Study
  Country: US (occurrence: US)
  Receive Date: 20220328
  Receipt Date: 20220622
  Transmission Date: 20220721
  Serious: Yes (Hospitalization, Other)
  Sender: FDA-Public Use
  Company Number: US-BAXTER-2022BAX006254

PATIENT
  Age: 11 Year
  Sex: Male
  Weight: 36 kg

DRUGS (28)
  1. DOXIL [Suspect]
     Active Substance: DOXORUBICIN HYDROCHLORIDE
     Indication: Neuroblastoma
     Dosage: UNK
     Route: 065
     Dates: start: 20160417, end: 20160419
  2. DOXIL [Suspect]
     Active Substance: DOXORUBICIN HYDROCHLORIDE
     Dosage: UNK
     Route: 065
     Dates: start: 20160509, end: 20160826
  3. CYCLOPHOSPHAMIDE [Suspect]
     Active Substance: CYCLOPHOSPHAMIDE
     Indication: Refractory cancer
     Dosage: PAST THERAPY
     Route: 042
     Dates: start: 20160417, end: 20160419
  4. CYCLOPHOSPHAMIDE [Suspect]
     Active Substance: CYCLOPHOSPHAMIDE
     Indication: Recurrent cancer
     Dosage: PAST THERAPY
     Route: 042
     Dates: start: 20160509, end: 20160826
  5. CYCLOPHOSPHAMIDE [Suspect]
     Active Substance: CYCLOPHOSPHAMIDE
     Dosage: ONCE A DAY, DAY 3-7 (MAXIMUM 5 DAYS EVERY 21 DAYS) (250 MG/M2)
     Route: 042
     Dates: start: 20220302
  6. VENETOCLAX [Suspect]
     Active Substance: VENETOCLAX
     Indication: Refractory cancer
     Dosage: INTERMITTENT DOSING, DAYS 1-10, TABLET FOR ORAL SUSPENSION
     Route: 048
     Dates: start: 20220228, end: 20220228
  7. VENETOCLAX [Suspect]
     Active Substance: VENETOCLAX
     Indication: Recurrent cancer
     Dosage: C2, DAYS 1-5 (500MG 1 IN 1 DAY)
     Route: 048
     Dates: start: 20220301
  8. TOPOTECAN HYDROCHLORIDE [Suspect]
     Active Substance: TOPOTECAN HYDROCHLORIDE
     Indication: Refractory cancer
     Dosage: ONCE A DAY, DAY 3-7 (MAXIMUM 5 DAYS EVERY 21 DAYS) (0.75 MG/M2)
     Route: 042
     Dates: start: 20220302
  9. TOPOTECAN HYDROCHLORIDE [Suspect]
     Active Substance: TOPOTECAN HYDROCHLORIDE
     Indication: Recurrent cancer
  10. ONDANSETRON [Concomitant]
     Active Substance: ONDANSETRON
     Indication: Prophylaxis of nausea and vomiting
     Dosage: 1 AS REQUIRED, AS NEEDED
     Route: 048
     Dates: start: 20220228
  11. ONDANSETRON [Concomitant]
     Active Substance: ONDANSETRON
     Indication: Nausea
     Dosage: 6 MILLIGRAM,ONCE
     Route: 048
     Dates: start: 20220307, end: 20220307
  12. ONDANSETRON [Concomitant]
     Active Substance: ONDANSETRON
     Indication: Vomiting
     Dosage: 6 MILLIGRAM,ONCE
     Route: 048
     Dates: start: 20220308, end: 20220308
  13. ONDANSETRON [Concomitant]
     Active Substance: ONDANSETRON
     Indication: Prophylaxis of nausea and vomiting
     Dosage: 16 MILLIGRAM,ONCE
     Route: 048
     Dates: start: 20220304, end: 20220304
  14. ONDANSETRON [Concomitant]
     Active Substance: ONDANSETRON
     Dosage: 5.48 MILLIGRAM,ONCE
     Route: 042
     Dates: start: 20220303, end: 20220303
  15. ONDANSETRON [Concomitant]
     Active Substance: ONDANSETRON
     Dosage: 10.003 MILLIGRAM,ONCE
     Route: 042
     Dates: start: 20220303, end: 20220303
  16. ONDANSETRON [Concomitant]
     Active Substance: ONDANSETRON
     Dosage: 16 MILLIGRAM,ONCE
     Route: 048
     Dates: start: 20220302, end: 20220302
  17. ONDANSETRON [Concomitant]
     Active Substance: ONDANSETRON
     Dosage: 6 MILLIGRAM,ONCE
     Route: 054
     Dates: start: 20220301, end: 20220301
  18. BACTRIM [Concomitant]
     Active Substance: SULFAMETHOXAZOLE\TRIMETHOPRIM
     Indication: Prophylaxis
     Dosage: TWICE A DAY EVERY SAT AND SUN
     Route: 048
     Dates: start: 20220305
  19. OXYCODONE [Concomitant]
     Active Substance: OXYCODONE
     Indication: Pain prophylaxis
     Dosage: 1 AS REQUIRED, EVERY 6 HOURS AS NEEDED
     Route: 048
     Dates: start: 20220228
  20. PROMETHAZINE [Concomitant]
     Active Substance: PROMETHAZINE HYDROCHLORIDE
     Indication: Nausea
     Dosage: 1 AS REQUIRED, EVERY 6 HOURS AS NEEDED
     Route: 048
     Dates: start: 20220228
  21. PROMETHAZINE [Concomitant]
     Active Substance: PROMETHAZINE HYDROCHLORIDE
     Indication: Vomiting
  22. LORAZEPAM [Concomitant]
     Active Substance: LORAZEPAM
     Indication: Prophylaxis of nausea and vomiting
     Dosage: 1 AS REQUIRED,  EVERY 6 HOURS AS NEEDED
     Route: 048
     Dates: start: 20220307
  23. LORAZEPAM [Concomitant]
     Active Substance: LORAZEPAM
     Indication: Nausea
     Dosage: 1 AS REQUIRED,  EVERY 6 HOURS AS NEEDED
     Route: 048
     Dates: start: 20220303, end: 20220303
  24. LORAZEPAM [Concomitant]
     Active Substance: LORAZEPAM
     Indication: Vomiting
  25. LORAZEPAM [Concomitant]
     Active Substance: LORAZEPAM
     Indication: Prophylaxis of nausea and vomiting
  26. NEULASTA [Concomitant]
     Active Substance: PEGFILGRASTIM
     Indication: Drug therapy
     Dosage: 6 MILLIGRAM,ONCE
     Route: 058
     Dates: start: 20220308, end: 20220308
  27. PIPERACILLIN AND TAZOBACTAM [Concomitant]
     Active Substance: PIPERACILLIN SODIUM\TAZOBACTAM SODIUM
     Indication: Febrile neutropenia
     Dosage: 3620 MILLIGRAM,ONCE
     Route: 042
     Dates: start: 20220310, end: 20220310
  28. CEFEPIME [Concomitant]
     Active Substance: CEFEPIME HYDROCHLORIDE
     Indication: Febrile neutropenia
     Dosage: (1800 MG,1 IN 8 HR)
     Route: 042
     Dates: start: 20220311

REACTIONS (2)
  - Febrile neutropenia [Recovered/Resolved]
  - Anaemia [Not Recovered/Not Resolved]

NARRATIVE: CASE EVENT DATE: 20220310
